FAERS Safety Report 7862246-X (Version None)
Quarter: 2011Q4

REPORT INFORMATION
  Report Type: 
  Country: None (occurrence: None)
  Receive Date: 20111026
  Receipt Date: 20111014
  Transmission Date: 20120403
  Serious: Yes (Other)
  Sender: FDA-Public Use
  Company Number: 2011SP038329

PATIENT
  Age: 60 Year
  Sex: Male
  Weight: 100 kg

DRUGS (8)
  1. REBETOL [Concomitant]
  2. VIRAFERONPEG [Suspect]
     Indication: HEPATITIS C
     Dosage: 150 MCG;QW
  3. REBETOL [Suspect]
     Indication: HEPATITIS C
     Dosage: 1200 MG;QD
  4. VIRAFERONPEG [Concomitant]
  5. ESIDRIX [Concomitant]
  6. CIALIS [Concomitant]
  7. RIBAVARIN [Concomitant]
  8. PEGASYS [Concomitant]

REACTIONS (4)
  - VITREOUS FLOATERS [None]
  - ILEUS PARALYTIC [None]
  - CONSTIPATION [None]
  - ABDOMINAL DISTENSION [None]
